FAERS Safety Report 9262930 (Version 2)
Quarter: 2013Q2

REPORT INFORMATION
  Report Type: Report from Study
  Country: US (occurrence: US)
  Receive Date: 20130430
  Receipt Date: 20130507
  Transmission Date: 20140414
  Serious: Yes (Death, Hospitalization)
  Sender: FDA-Public Use
  Company Number: US-ASTELLAS-2013US004507

PATIENT
  Age: 57 Year
  Sex: Male

DRUGS (1)
  1. ERLOTINIB TABLET [Suspect]
     Indication: PRODUCT USED FOR UNKNOWN INDICATION
     Dosage: UNK
     Route: 065

REACTIONS (2)
  - Hospitalisation [Unknown]
  - Malignant neoplasm progression [Fatal]
